FAERS Safety Report 11106404 (Version 1)
Quarter: 2015Q2

REPORT INFORMATION
  Report Type: Spontaneous
  Country: US (occurrence: None)
  Receive Date: 20150511
  Receipt Date: 20150511
  Transmission Date: 20150821
  Serious: No
  Sender: FDA-Public Use
  Company Number: None

PATIENT
  Age: 66 Year
  Sex: Male
  Weight: 98.2 kg

DRUGS (1)
  1. TAMSULOSIN [Suspect]
     Active Substance: TAMSULOSIN
     Dosage: MG EVERY DAY PO
     Route: 048
     Dates: start: 20150320, end: 20150322

REACTIONS (2)
  - Priapism [None]
  - Similar reaction on previous exposure to drug [None]

NARRATIVE: CASE EVENT DATE: 20150322
